FAERS Safety Report 8964839 (Version 4)
Quarter: 2013Q1

REPORT INFORMATION
  Report Type: Spontaneous
  Country: JP (occurrence: JP)
  Receive Date: 20121213
  Receipt Date: 20130131
  Transmission Date: 20140127
  Serious: Yes (Death, Hospitalization)
  Sender: FDA-Public Use
  Company Number: JP-PFIZER INC-2012315286

PATIENT
  Age: 90 Year
  Sex: Male
  Weight: 50 kg

DRUGS (2)
  1. LYRICA [Suspect]
     Indication: POST HERPETIC NEURALGIA
     Dosage: 100 MG, DAILY
     Route: 048
     Dates: start: 20121203, end: 20121206
  2. LYRICA [Suspect]
     Dosage: 150 MG, DAILY
     Route: 048
     Dates: start: 20121206, end: 20121207

REACTIONS (2)
  - Hypercapnia [Fatal]
  - Encephalopathy [Fatal]
